FAERS Safety Report 11616912 (Version 7)
Quarter: 2016Q2

REPORT INFORMATION
  Report Type: Spontaneous
  Country: PT (occurrence: PT)
  Receive Date: 20151009
  Receipt Date: 20160504
  Transmission Date: 20160815
  Serious: Yes (Hospitalization, Other)
  Sender: FDA-Public Use
  Company Number: PT-GILEAD-2015-0172325

PATIENT
  Age: 44 Year
  Sex: Male

DRUGS (8)
  1. PERINDOPRIL [Concomitant]
     Active Substance: PERINDOPRIL
     Indication: HYPERTENSION
  2. RIBAVIRIN. [Suspect]
     Active Substance: RIBAVIRIN
     Indication: HEPATITIS C
     Dosage: 1200 MG, QD
     Route: 048
     Dates: start: 20150908, end: 20151006
  3. AMLODIPINE [Concomitant]
     Active Substance: AMLODIPINE BESYLATE
     Indication: HYPERTENSION
  4. SOVALDI [Suspect]
     Active Substance: SOFOSBUVIR
     Indication: HEPATITIS C
     Dosage: UNK
     Route: 048
     Dates: start: 20150908, end: 20151006
  5. INDERAL [Concomitant]
     Active Substance: PROPRANOLOL HYDROCHLORIDE
     Indication: BLOOD PRESSURE MEASUREMENT
  6. CARVEDILOL. [Concomitant]
     Active Substance: CARVEDILOL
     Indication: HYPERTENSION
  7. SOVALDI [Suspect]
     Active Substance: SOFOSBUVIR
     Dosage: UNK
     Route: 048
     Dates: start: 20151008, end: 20151013
  8. RIBAVIRIN. [Suspect]
     Active Substance: RIBAVIRIN
     Dosage: 1200 MG, QD
     Route: 048
     Dates: start: 20151008, end: 20151013

REACTIONS (13)
  - Abnormal behaviour [Recovered/Resolved]
  - Disorientation [Unknown]
  - Insomnia [Recovered/Resolved]
  - Psychotic disorder [Unknown]
  - Aggression [Recovered/Resolved]
  - Confusional state [Recovered/Resolved]
  - Hypertension [Unknown]
  - Ammonia abnormal [Unknown]
  - Disorientation [Unknown]
  - Encephalopathy [Unknown]
  - Cognitive disorder [Unknown]
  - Agitation [Unknown]
  - Unevaluable event [Unknown]

NARRATIVE: CASE EVENT DATE: 201509
